FAERS Safety Report 4391153-2 (Version None)
Quarter: 2004Q3

REPORT INFORMATION
  Report Type: 
  Country: None (occurrence: None)
  Receive Date: 20040707
  Receipt Date: 20040621
  Transmission Date: 20050211
  Serious: Yes (Death)
  Sender: FDA-Public Use
  Company Number: JP-BRISTOL-MYERS SQUIBB COMPANY-12619722

PATIENT
  Age: 71 Year
  Sex: Male

DRUGS (4)
  1. TAXOL [Suspect]
     Indication: GASTRIC CANCER
     Route: 042
     Dates: start: 20040618, end: 20040618
  2. DECADRON [Concomitant]
     Indication: PREMEDICATION
     Route: 042
     Dates: start: 20040618, end: 20040618
  3. FAMOTIDINE [Concomitant]
     Indication: PREMEDICATION
     Route: 042
     Dates: start: 20040618, end: 20040618
  4. HIBERNA [Concomitant]
     Indication: PREMEDICATION
     Route: 042
     Dates: start: 20040618, end: 20040618

REACTIONS (3)
  - CARDIO-RESPIRATORY ARREST [None]
  - GASTRIC CANCER [None]
  - SUDDEN DEATH [None]
